FAERS Safety Report 7148856-6 (Version None)
Quarter: 2010Q4

REPORT INFORMATION
  Report Type: 
  Country: None (occurrence: None)
  Receive Date: 20101209
  Receipt Date: 20101124
  Transmission Date: 20110411
  Serious: Yes (Hospitalization)
  Sender: FDA-Public Use
  Company Number: BR-AMGEN-BRASP2010007381

PATIENT

DRUGS (3)
  1. ENBREL [Suspect]
     Indication: RHEUMATOID ARTHRITIS
     Dosage: 50 MG EVERY 15 DAYS
     Route: 058
     Dates: start: 20100322, end: 20100601
  2. ENBREL [Suspect]
     Dosage: 50 MG, QWK
     Dates: start: 20100101
  3. METHOTREXATE SODIUM [Suspect]
     Indication: RHEUMATOID ARTHRITIS
     Dosage: TWICE WEEKLY
     Route: 048
     Dates: start: 20080101

REACTIONS (5)
  - DRUG INEFFECTIVE [None]
  - IMMUNE SYSTEM DISORDER [None]
  - OEDEMA PERIPHERAL [None]
  - PAIN [None]
  - STOMATITIS [None]
